FAERS Safety Report 18772989 (Version 1)
Quarter: 2021Q1

REPORT INFORMATION
  Report Type: Spontaneous
  Country: US (occurrence: US)
  Receive Date: 20210122
  Receipt Date: 20210122
  Transmission Date: 20210419
  Serious: Yes (Other)
  Sender: FDA-Public Use
  Company Number: US-SA-2021SA017158

PATIENT
  Age: 47 Year
  Sex: Female

DRUGS (1)
  1. KEVZARA [Suspect]
     Active Substance: SARILUMAB
     Indication: PSORIATIC ARTHROPATHY
     Dosage: 200 MG, QOW
     Route: 058
     Dates: start: 20201002

REACTIONS (7)
  - Fatigue [Recovering/Resolving]
  - Product use in unapproved indication [Unknown]
  - Injection site reaction [Recovering/Resolving]
  - Psoriatic arthropathy [Recovering/Resolving]
  - Alopecia [Recovering/Resolving]
  - Headache [Recovering/Resolving]
  - Arthralgia [Recovering/Resolving]

NARRATIVE: CASE EVENT DATE: 20201002
